FAERS Safety Report 9955486 (Version 1)
Quarter: 2014Q1

REPORT INFORMATION
  Report Type: Spontaneous
  Country: JP (occurrence: JP)
  Receive Date: 20140304
  Receipt Date: 20140304
  Transmission Date: 20141002
  Serious: Yes (Other)
  Sender: FDA-Public Use
  Company Number: JP-ELI_LILLY_AND_COMPANY-JP201402007264

PATIENT
  Sex: Male

DRUGS (1)
  1. HUMALOG 50% LISPRO, 50% NPL [Suspect]
     Indication: DIABETES MELLITUS
     Route: 058

REACTIONS (4)
  - Skin ulcer [Unknown]
  - Malaise [Recovering/Resolving]
  - Hypophagia [Recovered/Resolved]
  - Tremor [Unknown]
